FAERS Safety Report 11519985 (Version 1)
Quarter: 2015Q3

REPORT INFORMATION
  Report Type: Spontaneous
  Country: US (occurrence: US)
  Receive Date: 20150918
  Receipt Date: 20150918
  Transmission Date: 20151125
  Serious: No
  Sender: FDA-Public Use
  Company Number: US-RB-068754-14

PATIENT

DRUGS (1)
  1. MUCINEX MAXIMUM STRENGTH [Suspect]
     Active Substance: GUAIFENESIN
     Indication: RHINORRHOEA
     Dosage: 1200MG. PRODUCT LAST USED ON: 10/SEP/2014; DOSING: 1 TABLET EVERY 5-6 HOURS; AMOUNT USED: 5 TABLETS
     Route: 065
     Dates: start: 20140908

REACTIONS (2)
  - Headache [Not Recovered/Not Resolved]
  - Incorrect drug administration duration [Not Recovered/Not Resolved]

NARRATIVE: CASE EVENT DATE: 20140908
